FAERS Safety Report 4712376-6 (Version None)
Quarter: 2005Q3

REPORT INFORMATION
  Report Type: 
  Country: None (occurrence: None)
  Receive Date: 20050711
  Receipt Date: 20050628
  Transmission Date: 20060218
  Serious: Yes (Other)
  Sender: FDA-Public Use
  Company Number: 2005094653

PATIENT
  Age: 75 Year
  Sex: Female
  Weight: 56.6996 kg

DRUGS (3)
  1. ZOLOFT [Suspect]
     Indication: DEPRESSION
     Dosage: 50 MG (50 MG, 1 IN 1 D) , ORAL
     Route: 048
     Dates: start: 20050101
  2. VASOTEC [Concomitant]
  3. DIURETICS [Concomitant]

REACTIONS (6)
  - BALANCE DISORDER [None]
  - DIZZINESS [None]
  - FALL [None]
  - HAEMORRHAGE [None]
  - HEAD INJURY [None]
  - LOSS OF CONSCIOUSNESS [None]
